FAERS Safety Report 6397169-9 (Version None)
Quarter: 2009Q4

REPORT INFORMATION
  Report Type: 
  Country: None (occurrence: None)
  Receive Date: 20091012
  Receipt Date: 20091002
  Transmission Date: 20100525
  Serious: Yes (Other)
  Sender: FDA-Public Use
  Company Number: US-PFIZER INC-2009278137

PATIENT
  Sex: Female
  Weight: 45 kg

DRUGS (2)
  1. NORVASC [Suspect]
     Indication: HYPERTENSION
     Route: 048
     Dates: start: 20090901
  2. HYDROCHLOROTHIAZIDE [Concomitant]

REACTIONS (3)
  - DREAMY STATE [None]
  - HALLUCINATION [None]
  - RESTLESSNESS [None]
